FAERS Safety Report 5162254-6 (Version None)
Quarter: 2006Q4

REPORT INFORMATION
  Report Type: 
  Country: None (occurrence: None)
  Receive Date: 20061121
  Receipt Date: 20061117
  Transmission Date: 20070319
  Serious: Yes (Death, Life-Threatening, Hospitalization)
  Sender: FDA-Public Use
  Company Number: CLOF-10381

PATIENT
  Age: 70 Year
  Sex: Male

DRUGS (9)
  1. CLOFARABINE [Suspect]
     Indication: ACUTE MYELOID LEUKAEMIA
     Dosage: 80 MG QD X 5 IV
     Route: 042
     Dates: start: 20061021, end: 20061025
  2. VANCOMYCIN [Concomitant]
  3. FORTAZ [Concomitant]
  4. LEVAQUIN [Concomitant]
  5. CANCIDAS [Concomitant]
  6. ZOSYN [Concomitant]
  7. ACYCLOVIR [Concomitant]
  8. AMIODARONE HCL [Concomitant]
  9. VERSED [Concomitant]

REACTIONS (8)
  - FALL [None]
  - FEBRILE NEUTROPENIA [None]
  - GENERAL PHYSICAL HEALTH DETERIORATION [None]
  - HYPOTENSION [None]
  - SEPSIS [None]
  - SKIN LACERATION [None]
  - STAPHYLOCOCCAL INFECTION [None]
  - SYNCOPE [None]
